FAERS Safety Report 6473156-7 (Version None)
Quarter: 2009Q4

REPORT INFORMATION
  Report Type: 
  Country: None (occurrence: None)
  Receive Date: 20091204
  Receipt Date: 20090421
  Transmission Date: 20100525
  Serious: Yes (Hospitalization)
  Sender: FDA-Public Use
  Company Number: JP-ELI_LILLY_AND_COMPANY-JP200808000581

PATIENT
  Age: 81 Year
  Sex: Female
  Weight: 41 kg

DRUGS (6)
  1. EVISTA [Suspect]
     Indication: OSTEOPOROSIS POSTMENOPAUSAL
     Dosage: 60 MG, DAILY (1/D)
     Route: 048
     Dates: start: 20071116, end: 20080328
  2. CELECOXIB [Concomitant]
     Indication: RHEUMATOID ARTHRITIS
     Dosage: 200 MG, DAILY (1/D)
     Route: 048
     Dates: start: 20071116, end: 20080328
  3. PREDONINE [Concomitant]
     Indication: RHEUMATOID ARTHRITIS
     Dosage: 2.5 MG, DAILY (1/D)
     Route: 048
     Dates: start: 20071116, end: 20080328
  4. ASPARA-CA [Concomitant]
     Indication: OSTEOPOROSIS POSTMENOPAUSAL
     Dosage: 400 MG, DAILY (1/D)
     Route: 048
     Dates: start: 20071116, end: 20080328
  5. ALFAROL [Concomitant]
     Indication: OSTEOPOROSIS POSTMENOPAUSAL
     Dosage: 0.5 UG, DAILY (1/D)
     Route: 048
     Dates: start: 20071116, end: 20080328
  6. MUCOSTA [Concomitant]
     Dosage: 200 MG, DAILY (1/D)
     Route: 048
     Dates: start: 20071116, end: 20080328

REACTIONS (2)
  - EMBOLISM VENOUS [None]
  - MALLORY-WEISS SYNDROME [None]
